FAERS Safety Report 10520088 (Version 1)
Quarter: 2014Q4

REPORT INFORMATION
  Report Type: Spontaneous
  Country: US (occurrence: US)
  Receive Date: 20141015
  Receipt Date: 20141015
  Transmission Date: 20150528
  Serious: No
  Sender: FDA-Public Use
  Company Number: US-EISAI MEDICAL RESEARCH-EC-2014-000802

PATIENT
  Age: 52 Year
  Sex: Female
  Weight: 81.6 kg

DRUGS (2)
  1. BABY ASPIRIN [Concomitant]
     Active Substance: ASPIRIN
  2. BELVIQ [Suspect]
     Active Substance: LORCASERIN HYDROCHLORIDE
     Indication: WEIGHT DECREASED
     Route: 048
     Dates: start: 201403, end: 201403

REACTIONS (2)
  - Migraine [Recovered/Resolved]
  - Pneumonia [Recovered/Resolved]

NARRATIVE: CASE EVENT DATE: 201403
